FAERS Safety Report 23513491 (Version 1)
Quarter: 2024Q1

REPORT INFORMATION
  Report Type: Spontaneous
  Country: FR (occurrence: FR)
  Receive Date: 20240212
  Receipt Date: 20240212
  Transmission Date: 20240410
  Serious: Yes (Hospitalization)
  Sender: FDA-Public Use
  Company Number: FR-AMERICAN REGENT INC-2024000457

PATIENT
  Age: 34 Year
  Sex: Female

DRUGS (1)
  1. VENOFER [Suspect]
     Active Substance: IRON SUCROSE
     Indication: Hypoferritinaemia
     Dosage: AT LEAST 18 INJECTIONS OF IV IRON SUCROSE 300MG EACH; TOTAL APPROX. 5400MG, THERAPY DURATION: 15 MON

REACTIONS (2)
  - Iron overload [Recovering/Resolving]
  - Off label use [Unknown]
